FAERS Safety Report 24768904 (Version 1)
Quarter: 2024Q4

REPORT INFORMATION
  Report Type: Spontaneous
  Country: CA (occurrence: CA)
  Receive Date: 20241224
  Receipt Date: 20241224
  Transmission Date: 20250115
  Serious: Yes (Death, Hospitalization)
  Sender: ROCHE
  Company Number: CA-ROCHE-10000159244

PATIENT

DRUGS (1)
  1. BEVACIZUMAB [Suspect]
     Active Substance: BEVACIZUMAB
     Indication: Metastases to peritoneum
     Route: 065

REACTIONS (10)
  - Anastomotic leak [Fatal]
  - Colorectal cancer metastatic [Fatal]
  - Deep vein thrombosis [Fatal]
  - Intra-abdominal fluid collection [Fatal]
  - Post procedural complication [Fatal]
  - Postoperative ileus [Fatal]
  - Postoperative wound infection [Fatal]
  - Therapy partial responder [Fatal]
  - Toxicity to various agents [Fatal]
  - Wound dehiscence [Fatal]
